FAERS Safety Report 6657565-9 (Version None)
Quarter: 2010Q1

REPORT INFORMATION
  Report Type: 
  Country: None (occurrence: None)
  Receive Date: 20100330
  Receipt Date: 20100316
  Transmission Date: 20100710
  Serious: Yes (Other)
  Sender: FDA-Public Use
  Company Number: US-TYCO HEALTHCARE/MALLINCKRODT-T201000869

PATIENT

DRUGS (54)
  1. OPTIMARK [Suspect]
     Indication: NUCLEAR MAGNETIC RESONANCE IMAGING BRAIN
     Dosage: 20 ML
     Dates: start: 20040506, end: 20060506
  2. MAGNEVIST [Suspect]
     Indication: NUCLEAR MAGNETIC RESONANCE IMAGING
     Dosage: 20 ML
     Dates: start: 20060802, end: 20060802
  3. MAGNEVIST [Suspect]
     Indication: NUCLEAR MAGNETIC RESONANCE IMAGING BRAIN
     Dosage: 20 ML
     Dates: start: 20060809, end: 20060809
  4. MAGNEVIST [Suspect]
     Dosage: 20 ML
     Dates: start: 20061020, end: 20061020
  5. MAGNEVIST [Suspect]
     Dosage: 20 ML
     Dates: start: 20061230, end: 20061230
  6. MAGNEVIST [Suspect]
     Dosage: 20 ML
     Dates: start: 20070114, end: 20070114
  7. MAGNEVIST [Suspect]
     Dosage: UNK
     Dates: start: 20071013, end: 20071013
  8. MAGNEVIST [Suspect]
     Dosage: 20 ML
     Dates: start: 20071113, end: 20071113
  9. MAGNEVIST [Suspect]
     Dosage: 20 ML
     Dates: start: 20080601, end: 20080601
  10. OMNISCAN [Suspect]
     Indication: NUCLEAR MAGNETIC RESONANCE IMAGING BRAIN
     Dosage: UNK
     Dates: start: 20060116, end: 20060116
  11. PROHANCE [Suspect]
     Indication: NUCLEAR MAGNETIC RESONANCE IMAGING BRAIN
     Dosage: 20 ML
     Dates: start: 20040506, end: 20040506
  12. MULTIHANCE [Suspect]
     Indication: IMAGING PROCEDURE
     Dosage: UNK
  13. GADOLINIUM [Suspect]
     Indication: IMAGING PROCEDURE
     Dosage: UNK
     Dates: start: 20041220, end: 20041220
  14. GADOLINIUM [Suspect]
     Dosage: UNK
     Dates: start: 20050218, end: 20050218
  15. GADOLINIUM [Suspect]
     Dosage: UNK
     Dates: start: 20050530, end: 20050530
  16. GADOLINIUM [Suspect]
     Dosage: UNK
     Dates: start: 20050608, end: 20050608
  17. GADOLINIUM [Suspect]
     Dosage: UNK
     Dates: start: 20050629, end: 20050629
  18. GADOLINIUM [Suspect]
     Dosage: UNK
     Dates: start: 20060216, end: 20060216
  19. GADOLINIUM [Suspect]
     Dosage: UNK
     Dates: start: 20060217, end: 20060217
  20. GADOLINIUM [Suspect]
     Dosage: UNK
     Dates: start: 20060330, end: 20060330
  21. GADOLINIUM [Suspect]
     Dosage: UNK
     Dates: start: 20060521, end: 20060521
  22. GADOLINIUM [Suspect]
     Dosage: UNK
     Dates: start: 20060712, end: 20060712
  23. GADOLINIUM [Suspect]
     Dosage: UNK
     Dates: start: 20061020, end: 20061020
  24. GADOLINIUM [Suspect]
     Dosage: UNK
     Dates: start: 20061228, end: 20061228
  25. GADOLINIUM [Suspect]
     Dosage: UNK
     Dates: start: 20061229
  26. GADOLINIUM [Suspect]
     Dosage: UNK
     Dates: start: 20070102, end: 20070102
  27. GADOLINIUM [Suspect]
     Dosage: UNK
     Dates: start: 20070114, end: 20070114
  28. GADOLINIUM [Suspect]
     Dosage: UNK
     Dates: start: 20071004, end: 20071004
  29. GADOLINIUM [Suspect]
     Dosage: UNK
     Dates: start: 20071025, end: 20071025
  30. GADOLINIUM [Suspect]
     Dosage: UNK
     Dates: start: 20071219, end: 20071219
  31. GADOLINIUM [Suspect]
     Dosage: UNK
     Dates: start: 20080427, end: 20080427
  32. GADOLINIUM [Suspect]
     Dosage: UNK
     Dates: start: 20080516, end: 20080516
  33. GADOLINIUM [Suspect]
     Dosage: UNK
     Dates: start: 20080530, end: 20080530
  34. GADOLINIUM [Suspect]
     Dosage: UNK
     Dates: start: 20080601, end: 20080601
  35. GADOLINIUM [Suspect]
     Dosage: UNK
     Dates: start: 20080710, end: 20080710
  36. GADOLINIUM [Suspect]
     Dosage: UNK
     Dates: start: 20080815, end: 20080815
  37. GADOLINIUM [Suspect]
     Dosage: UNK
     Dates: start: 20081017, end: 20081017
  38. GADOLINIUM [Suspect]
     Dosage: UNK
     Dates: start: 20081121, end: 20081121
  39. GADOLINIUM [Suspect]
     Dosage: UNK
     Dates: start: 20090520, end: 20090520
  40. GADOLINIUM [Suspect]
     Dosage: UNK
     Dates: start: 20090522, end: 20090522
  41. CRESTOR [Concomitant]
  42. LIPITOR [Concomitant]
  43. PROVENTIL                          /00139501/ [Concomitant]
  44. COMBIVENT [Concomitant]
  45. FLOVENT [Concomitant]
  46. SYNTHROID [Concomitant]
  47. HYZAAR                             /01284801/ [Concomitant]
  48. METFORMIN HCL [Concomitant]
  49. SINGULAIR [Concomitant]
     Dosage: UNK
  50. ATENOLOL [Concomitant]
  51. NEURONTIN [Concomitant]
  52. PREDNISONE [Concomitant]
  53. FRAGMIN [Concomitant]
  54. LOVENOX [Concomitant]

REACTIONS (12)
  - ANAEMIA [None]
  - ASTHMA [None]
  - CANDIDIASIS [None]
  - CHEST PAIN [None]
  - DEEP VEIN THROMBOSIS [None]
  - DYSPHAGIA [None]
  - DYSPNOEA [None]
  - LIPOMA [None]
  - LYMPHADENOPATHY [None]
  - MYALGIA [None]
  - NEPHROGENIC SYSTEMIC FIBROSIS [None]
  - OEDEMA PERIPHERAL [None]
